FAERS Safety Report 4878216-X (Version None)
Quarter: 2006Q1

REPORT INFORMATION
  Report Type: 
  Country: None (occurrence: None)
  Receive Date: 20060111
  Receipt Date: 20050520
  Transmission Date: 20060701
  Serious: Yes (Death, Hospitalization)
  Sender: FDA-Public Use
  Company Number: US-MERCK-0505USA02781

PATIENT
  Age: 67 Year
  Sex: Male
  Weight: 105 kg

DRUGS (2)
  1. VIOXX [Suspect]
     Indication: ARTHRALGIA
     Route: 048
     Dates: start: 20001110, end: 20040527
  2. ACETAMINOPHEN [Concomitant]
     Indication: ANALGESIC EFFECT
     Route: 065

REACTIONS (6)
  - DEATH [None]
  - DIABETES MELLITUS [None]
  - INFLUENZA [None]
  - MYOCARDIAL INFARCTION [None]
  - NASOPHARYNGITIS [None]
  - NEPHROLITHIASIS [None]
